FAERS Safety Report 7031361-5 (Version None)
Quarter: 2010Q4

REPORT INFORMATION
  Report Type: 
  Country: None (occurrence: None)
  Receive Date: 20101006
  Receipt Date: 20100927
  Transmission Date: 20110411
  Serious: Yes (Hospitalization, Other)
  Sender: FDA-Public Use
  Company Number: US-ABBOTT-10P-163-0674041-00

PATIENT
  Sex: Male
  Weight: 95.34 kg

DRUGS (3)
  1. DEPAKOTE [Suspect]
     Indication: EPILEPSY
     Dates: start: 19950101, end: 20100801
  2. DIVALPROEX SODIUM [Suspect]
     Indication: EPILEPSY
     Dates: start: 20100801
  3. DOXASOZIN [Concomitant]
     Indication: PROSTATOMEGALY

REACTIONS (5)
  - GRAND MAL CONVULSION [None]
  - HEAD INJURY [None]
  - HEADACHE [None]
  - PLASTIC SURGERY TO THE FACE [None]
  - SKIN CANCER [None]
